FAERS Safety Report 4269180-5 (Version None)
Quarter: 2004Q1

REPORT INFORMATION
  Report Type: 
  Country: None (occurrence: None)
  Receive Date: 20040113
  Receipt Date: 20031216
  Transmission Date: 20041129
  Serious: Yes (Other)
  Sender: FDA-Public Use
  Company Number: US-GLAXOSMITHKLINE-A0443267A

PATIENT
  Age: 62 Year
  Sex: Female

DRUGS (6)
  1. ALOSETRON [Suspect]
     Indication: IRRITABLE BOWEL SYNDROME
     Route: 048
     Dates: start: 20031205, end: 20031211
  2. LISINOPRIL [Concomitant]
     Indication: HYPERTENSION
     Dates: start: 19960101
  3. VIOXX [Concomitant]
     Indication: ARTHRITIS
     Dates: start: 20030401
  4. GLUCOSAMINE [Concomitant]
     Indication: FIBROMYALGIA
     Dates: start: 19960101
  5. CALCIUM [Concomitant]
     Indication: OSTEOPOROSIS PROPHYLAXIS
     Dates: start: 19960101
  6. ALLEGRA [Concomitant]
     Indication: SEASONAL ALLERGY
     Dates: start: 20000101

REACTIONS (9)
  - COLITIS ISCHAEMIC [None]
  - DIARRHOEA HAEMORRHAGIC [None]
  - DIVERTICULUM [None]
  - DIZZINESS [None]
  - HAEMORRHOIDS [None]
  - LOSS OF CONSCIOUSNESS [None]
  - NAUSEA [None]
  - SYNCOPE [None]
  - VOMITING [None]
